FAERS Safety Report 19501026 (Version 1)
Quarter: 2021Q3

REPORT INFORMATION
  Report Type: Spontaneous
  Country: US (occurrence: US)
  Receive Date: 20210706
  Receipt Date: 20210706
  Transmission Date: 20211014
  Serious: No
  Sender: FDA-Public Use
  Company Number: None

PATIENT
  Age: 35 Year
  Sex: Female
  Weight: 90 kg

DRUGS (2)
  1. EFFEXOR XR [Concomitant]
     Active Substance: VENLAFAXINE HYDROCHLORIDE
  2. METHYLPHENIDATE HYDROCHLORIDE ER 54 MG T [Suspect]
     Active Substance: METHYLPHENIDATE HYDROCHLORIDE
     Indication: ATTENTION DEFICIT HYPERACTIVITY DISORDER
     Route: 048
     Dates: start: 20210603, end: 20210706

REACTIONS (5)
  - Decreased appetite [None]
  - Product substitution issue [None]
  - Disturbance in attention [None]
  - Therapy non-responder [None]
  - Distractibility [None]

NARRATIVE: CASE EVENT DATE: 20210706
